FAERS Safety Report 4712550-9 (Version None)
Quarter: 2005Q2

REPORT INFORMATION
  Report Type: 
  Country: None (occurrence: None)
  Receive Date: 20050629
  Receipt Date: 20050412
  Transmission Date: 20051028
  Serious: No
  Sender: FDA-Public Use
  Company Number: 05P-163-0297162-00

PATIENT
  Age: 80 Year
  Sex: Female
  Weight: 62.5964 kg

DRUGS (8)
  1. HUMIRA [Suspect]
     Indication: RHEUMATOID ARTHRITIS
     Dosage: 40 MG, 1 IN 2 WK, SUBCUTANEOUS
     Route: 058
     Dates: start: 20050201
  2. METHOTREXATE [Concomitant]
  3. FOLIC ACID [Concomitant]
  4. METOPROLOL SUCCINATE [Concomitant]
  5. LANSOPRAZOLE [Concomitant]
  6. VITAMINS [Concomitant]
  7. CALCIUM GLUCONATE [Concomitant]
  8. ASPIRIN [Concomitant]

REACTIONS (4)
  - DRUG INEFFECTIVE [None]
  - DRY SKIN [None]
  - ERYTHEMA [None]
  - NASAL OEDEMA [None]
